FAERS Safety Report 8799322 (Version 1)
Quarter: 2012Q4

REPORT INFORMATION
  Report Type: 
  Country: US (occurrence: US)
  Receive Date: 20120919
  Receipt Date: 20120919
  Transmission Date: 20130627
  Serious: Yes (Other)
  Sender: FDA-Public Use
  Company Number: US-ROXANE LABORATORIES, INC.-2012-RO-01863RO

PATIENT
  Age: 76 Year
  Sex: Female

DRUGS (2)
  1. AZATHIOPRINE [Suspect]
     Indication: PEMPHIGOID
     Dosage: 150 mg
  2. PREDNISONE [Suspect]
     Indication: PEMPHIGOID
     Dosage: 5 mg

REACTIONS (2)
  - Epstein-Barr virus test positive [Unknown]
  - Mucocutaneous ulceration [Recovered/Resolved]
